FAERS Safety Report 10205748 (Version 4)
Quarter: 2014Q3

REPORT INFORMATION
  Report Type: Spontaneous
  Country: JP (occurrence: JP)
  Receive Date: 20140530
  Receipt Date: 20140724
  Transmission Date: 20150326
  Serious: Yes (Hospitalization)
  Sender: FDA-Public Use
  Company Number: JP-BEH-2014042764

PATIENT
  Age: 73 Year
  Sex: Male
  Weight: 60.2 kg

DRUGS (13)
  1. ALBUMINAR 25% [Suspect]
     Active Substance: ALBUMIN (HUMAN)
     Indication: HYPOALBUMINAEMIA
     Dosage: 50 ML
     Route: 042
     Dates: start: 20140214, end: 20140214
  2. ALL OTHER THERAPEUTIC PRODUCTS [Concomitant]
     Active Substance: UNSPECIFIED INGREDIENT
     Route: 042
     Dates: start: 20140214
  3. RED CELL CONCENTRATE [Concomitant]
     Dates: start: 20131110, end: 20131124
  4. WASHED PLATELET [Concomitant]
     Dates: start: 20131110, end: 20140324
  5. PLATELETS [Concomitant]
     Active Substance: HUMAN PLATELET, ALLOGENIC
     Dates: start: 20131110, end: 20140324
  6. ALBUMINAR 25% [Suspect]
     Active Substance: ALBUMIN (HUMAN)
     Indication: SHOCK HAEMORRHAGIC
     Dosage: 50 ML
     Route: 042
     Dates: start: 20140214, end: 20140214
  7. OLMETEC [Concomitant]
     Active Substance: OLMESARTAN MEDOXOMIL
     Indication: HYPERTENSION
     Dosage: 2 TABLETS TWICE  A DAY
     Route: 048
  8. ALBUMINAR 25% [Suspect]
     Active Substance: ALBUMIN (HUMAN)
     Indication: HYPOALBUMINAEMIA
     Dosage: 50 ML
     Route: 042
     Dates: start: 20140214, end: 20140214
  9. FRESH FROZEN PLASMA [Concomitant]
     Active Substance: HUMAN PLASMA
     Dates: start: 20131110, end: 20140324
  10. ADALAT CC [Concomitant]
     Active Substance: NIFEDIPINE
     Dosage: STARTED IN HIS 30^S
     Route: 048
  11. LASIX [Concomitant]
     Active Substance: FUROSEMIDE
     Indication: POLYURIA
     Route: 042
     Dates: start: 20140213
  12. CRAVIT [Concomitant]
     Active Substance: LEVOFLOXACIN
     Indication: URINARY TRACT INFECTION
     Route: 042
     Dates: start: 20140214
  13. NORVASC [Concomitant]
     Active Substance: AMLODIPINE BESYLATE
     Indication: HYPERTENSION
     Dosage: STARTED IN HIS 30^S
     Route: 048

REACTIONS (1)
  - Loss of consciousness [Recovered/Resolved]

NARRATIVE: CASE EVENT DATE: 20140214
